FAERS Safety Report 7401257-5 (Version None)
Quarter: 2011Q2

REPORT INFORMATION
  Report Type: 
  Country: None (occurrence: None)
  Receive Date: 20110407
  Receipt Date: 20110328
  Transmission Date: 20111010
  Serious: Yes (Hospitalization, Other)
  Sender: FDA-Public Use
  Company Number: DE-BAXTER-2011BH008192

PATIENT
  Age: 69 Year
  Sex: Male

DRUGS (4)
  1. EXTRANEAL [Suspect]
     Indication: DIABETIC NEPHROPATHY
     Route: 033
     Dates: start: 20070712, end: 20101116
  2. EXTRANEAL [Suspect]
     Route: 033
     Dates: start: 20100101
  3. EXTRANEAL [Suspect]
     Route: 033
     Dates: start: 20100101
  4. EXTRANEAL [Suspect]
     Indication: PERITONEAL DIALYSIS
     Route: 033
     Dates: start: 20070712, end: 20101116

REACTIONS (5)
  - GASTROINTESTINAL HAEMORRHAGE [None]
  - PERITONITIS [None]
  - HYPERPARATHYROIDISM SECONDARY [None]
  - PERITONITIS BACTERIAL [None]
  - HAEMORRHAGIC ANAEMIA [None]
